FAERS Safety Report 9740970 (Version 1)
Quarter: 2013Q4

REPORT INFORMATION
  Report Type: Spontaneous
  Country: US (occurrence: US)
  Receive Date: 20131209
  Receipt Date: 20131209
  Transmission Date: 20140711
  Serious: No
  Sender: FDA-Public Use
  Company Number: US-TEVA-448472USA

PATIENT
  Sex: Male
  Weight: 97.61 kg

DRUGS (9)
  1. AZILECT [Suspect]
     Indication: PARKINSON^S DISEASE
     Route: 048
     Dates: start: 20131103
  2. HYDROCHLOROTHIAZIDE [Concomitant]
  3. NORVASC [Concomitant]
  4. LIPITOR [Concomitant]
     Indication: HYPERCHOLESTEROLAEMIA
  5. ASPIRIN [Concomitant]
     Indication: PROPHYLAXIS
  6. CENTRUM SILVER [Concomitant]
     Indication: VITAMIN SUPPLEMENTATION
  7. VITAMIN D NOS [Concomitant]
     Indication: VITAMIN SUPPLEMENTATION
  8. OMEGA 3 FISH OIL [Concomitant]
     Indication: VITAMIN SUPPLEMENTATION
  9. STOOL SOFTENER [Concomitant]
     Indication: CONSTIPATION

REACTIONS (7)
  - Dry eye [Not Recovered/Not Resolved]
  - Dry mouth [Not Recovered/Not Resolved]
  - Pollakiuria [Not Recovered/Not Resolved]
  - Muscular weakness [Not Recovered/Not Resolved]
  - Asthenia [Not Recovered/Not Resolved]
  - Asthenia [Not Recovered/Not Resolved]
  - Constipation [Recovered/Resolved]
